FAERS Safety Report 13315210 (Version 1)
Quarter: 2017Q1

REPORT INFORMATION
  Report Type: Report from Study
  Country: CO (occurrence: CO)
  Receive Date: 20170309
  Receipt Date: 20170309
  Transmission Date: 20170428
  Serious: Yes (Hospitalization, Other)
  Sender: FDA-Public Use
  Company Number: CO-BRISTOL-MYERS SQUIBB COMPANY-BMS-2017-019332

PATIENT
  Sex: Male

DRUGS (1)
  1. NIVOLUMAB [Suspect]
     Active Substance: NIVOLUMAB
     Indication: PRODUCT USED FOR UNKNOWN INDICATION
     Dosage: 200 MG, Q2WK
     Route: 042
     Dates: start: 20170222

REACTIONS (3)
  - Cerebral haemorrhage [Unknown]
  - Dyskinesia [Recovering/Resolving]
  - Noninfective encephalitis [Unknown]

NARRATIVE: CASE EVENT DATE: 20170301
